FAERS Safety Report 24529170 (Version 1)
Quarter: 2024Q4

REPORT INFORMATION
  Report Type: Spontaneous
  Country: CN (occurrence: CN)
  Receive Date: 20241021
  Receipt Date: 20241021
  Transmission Date: 20250115
  Serious: Yes (Other)
  Sender: KARYOPHARM THERAPEUTICS
  Company Number: CN-KARYOPHARM-2024KPT001665

PATIENT

DRUGS (8)
  1. XPOVIO [Suspect]
     Active Substance: SELINEXOR
     Indication: Acute myeloid leukaemia refractory
     Dosage: 60 MG, WEEKLY FOR 4 WEEKS
     Dates: start: 20230827
  2. DECITABINE [Concomitant]
     Active Substance: DECITABINE
     Dosage: 25 MG DAYS 1-5
     Dates: start: 20230827
  3. ACLARUBICIN [Concomitant]
     Active Substance: ACLARUBICIN
     Dosage: 20 MG INTRAVENOUS BOLUS INJECTION DAILY FOR FOUR DAYS
     Route: 042
     Dates: start: 20230608
  4. ACLARUBICIN [Concomitant]
     Active Substance: ACLARUBICIN
     Dosage: 20 MG ON DAYS 3 AND 4
     Dates: start: 20230827
  5. CYTARABINE [Concomitant]
     Active Substance: CYTARABINE
     Dosage: 16 MG, BID, FOR EVERY 12 HOURS , FOR EVERY 14 DAYS
     Route: 058
     Dates: start: 20230608
  6. CYTARABINE [Concomitant]
     Active Substance: CYTARABINE
     Dosage: 1.5G/D Q12H) FOR THREE DAYS IN ONE CYCLE
     Dates: start: 20231111
  7. GRANULOCYTE COLONY-STIMULATING FACTOR NOS [Concomitant]
     Active Substance: GRANULOCYTE COLONY-STIMULATING FACTOR NOS
     Dosage: 300 UG FOR 14 DAYS; ON DAYS 3 TO 10
     Route: 058
     Dates: start: 20230608
  8. AZACITIDINE [Concomitant]
     Active Substance: AZACITIDINE

REACTIONS (3)
  - Myelosuppression [Recovered/Resolved]
  - Pancytopenia [Recovered/Resolved]
  - Off label use [Recovered/Resolved]

NARRATIVE: CASE EVENT DATE: 20230827
